FAERS Safety Report 8078170-6 (Version None)
Quarter: 2012Q1

REPORT INFORMATION
  Report Type: 
  Country: None (occurrence: None)
  Receive Date: 20120127
  Receipt Date: 20111004
  Transmission Date: 20120608
  Serious: No
  Sender: FDA-Public Use
  Company Number: US-BAUSCH-2011BL006708

PATIENT
  Age: 39 Year
  Sex: Male

DRUGS (1)
  1. ZYLET [Suspect]
     Indication: CONJUNCTIVITIS
     Route: 047
     Dates: start: 20110930, end: 20111004

REACTIONS (2)
  - DRUG INEFFECTIVE [None]
  - CONJUNCTIVITIS [None]
